FAERS Safety Report 9269657 (Version 1)
Quarter: 2013Q2

REPORT INFORMATION
  Report Type: Spontaneous
  Country: US (occurrence: US)
  Receive Date: 20130503
  Receipt Date: 20130503
  Transmission Date: 20140414
  Serious: No
  Sender: FDA-Public Use
  Company Number: US-009507513-1304USA016203

PATIENT
  Sex: Female

DRUGS (2)
  1. NASONEX [Suspect]
     Indication: HYPERSENSITIVITY
     Dosage: 2 SPRAY IN EACH NOSTRIL
     Route: 045
     Dates: start: 2008
  2. METFORMIN [Concomitant]

REACTIONS (2)
  - Rhinalgia [Recovered/Resolved]
  - Product quality issue [Unknown]
